FAERS Safety Report 7722624-6 (Version None)
Quarter: 2011Q3

REPORT INFORMATION
  Report Type: 
  Country: None (occurrence: None)
  Receive Date: 20110831
  Receipt Date: 20110830
  Transmission Date: 20111222
  Serious: Yes (Hospitalization, Other)
  Sender: FDA-Public Use
  Company Number: US-MERCK-1108USA00421

PATIENT
  Age: 53 Year
  Sex: Female

DRUGS (1)
  1. INVANZ [Suspect]
     Indication: SEPSIS
     Route: 065

REACTIONS (4)
  - PRODUCT RECONSTITUTION ISSUE [None]
  - DRUG DOSE OMISSION [None]
  - PRODUCT LABEL ISSUE [None]
  - CONDITION AGGRAVATED [None]
